FAERS Safety Report 5884621-5 (Version None)
Quarter: 2008Q3

REPORT INFORMATION
  Report Type: 
  Country: None (occurrence: None)
  Receive Date: 20080911
  Receipt Date: 20080901
  Transmission Date: 20090109
  Serious: Yes (Other)
  Sender: FDA-Public Use
  Company Number: 2008SP017809

PATIENT
  Age: 32 Year
  Sex: Male

DRUGS (1)
  1. DIPROPHOS (BETAMETHASONE SODIUM PHOSPHATE/DIPROPIONATE) (BETAMETHASONE [Suspect]
     Indication: ANKYLOSING SPONDYLITIS
     Dosage: 2; IM
     Route: 030
     Dates: start: 19990101

REACTIONS (3)
  - CEREBROVASCULAR ACCIDENT [None]
  - DRUG ABUSE [None]
  - DRUG PRESCRIBING ERROR [None]
